FAERS Safety Report 17362433 (Version 1)
Quarter: 2020Q1

REPORT INFORMATION
  Report Type: Spontaneous
  Country: FR (occurrence: FR)
  Receive Date: 20200203
  Receipt Date: 20200203
  Transmission Date: 20200409
  Serious: Yes (Life-Threatening)
  Sender: FDA-Public Use
  Company Number: FR-BIOVITRUM-2013FR0490

PATIENT
  Sex: Male
  Weight: 5 kg

DRUGS (1)
  1. ORFADIN [Suspect]
     Active Substance: NITISINONE
     Indication: TYROSINAEMIA
     Route: 064

REACTIONS (5)
  - Foetal exposure during pregnancy [Not Recovered/Not Resolved]
  - Respiratory distress [Recovered/Resolved]
  - Neonatal anoxia [Recovered/Resolved]
  - Amino acid level increased [Recovered/Resolved]
  - Rhinorrhoea [Unknown]
